FAERS Safety Report 5292078-0 (Version None)
Quarter: 2007Q2

REPORT INFORMATION
  Report Type: 
  Country: None (occurrence: None)
  Receive Date: 20070403
  Receipt Date: 20070323
  Transmission Date: 20071010
  Serious: Yes (Hospitalization)
  Sender: FDA-Public Use
  Company Number: 154385ISR

PATIENT
  Age: 89 Year
  Sex: Male

DRUGS (2)
  1. DICLOFENAC [Suspect]
     Indication: BACK PAIN
     Dosage: ORAL
     Route: 048
     Dates: start: 20061122, end: 20061123
  2. PARACETAMOL W/CODEINE PHOSPHATE [Suspect]
     Dosage: ORAL
     Route: 048
     Dates: start: 20061122, end: 20061123

REACTIONS (2)
  - DERMATOMYOSITIS [None]
  - OEDEMA PERIPHERAL [None]
